FAERS Safety Report 20793445 (Version 1)
Quarter: 2022Q2

REPORT INFORMATION
  Report Type: Spontaneous
  Country: CN (occurrence: CN)
  Receive Date: 20220506
  Receipt Date: 20220506
  Transmission Date: 20220721
  Serious: Yes (Hospitalization)
  Sender: FDA-Public Use
  Company Number: CN-SA-SAC20220504000919

PATIENT
  Age: 66 Year
  Sex: Male
  Weight: 60 kg

DRUGS (3)
  1. ENOXAPARIN SODIUM [Suspect]
     Active Substance: ENOXAPARIN SODIUM
     Indication: Toxicity to various agents
     Dosage: 0.6 ML, QD
     Route: 058
     Dates: start: 20220104, end: 20220109
  2. BATROXOBIN [Concomitant]
     Active Substance: BATROXOBIN
     Indication: Toxicity to various agents
     Dosage: 5 U, QD
     Route: 041
     Dates: start: 20220104, end: 20220109
  3. BACLOFEN [Concomitant]
     Active Substance: BACLOFEN

REACTIONS (1)
  - Rash [Recovering/Resolving]

NARRATIVE: CASE EVENT DATE: 20220110
